FAERS Safety Report 6538064-1 (Version None)
Quarter: 2010Q1

REPORT INFORMATION
  Report Type: 
  Country: None (occurrence: None)
  Receive Date: 20100112
  Receipt Date: 20100112
  Transmission Date: 20100710
  Serious: Yes (Hospitalization)
  Sender: FDA-Public Use
  Company Number: None

PATIENT
  Sex: Female
  Weight: 69.4003 kg

DRUGS (1)
  1. NITROFURANTOIN MACRO 50MG CAPSULES TEVA [Suspect]
     Indication: CYSTITIS
     Dosage: 50 MG 1 PER DAY PO
     Route: 048
     Dates: start: 20091105, end: 20091208

REACTIONS (11)
  - ABDOMINAL PAIN UPPER [None]
  - ARTHRALGIA [None]
  - CHILLS [None]
  - HEADACHE [None]
  - INFLUENZA [None]
  - INTERSTITIAL LUNG DISEASE [None]
  - PAIN [None]
  - PYREXIA [None]
  - TREMOR [None]
  - UROSEPSIS [None]
  - VOMITING [None]
